FAERS Safety Report 7341327-3 (Version None)
Quarter: 2011Q1

REPORT INFORMATION
  Report Type: 
  Country: None (occurrence: None)
  Receive Date: 20110309
  Receipt Date: 20110307
  Transmission Date: 20110831
  Serious: Yes (Hospitalization, Other)
  Sender: FDA-Public Use
  Company Number: US-AMGEN-USASP2010000891

PATIENT
  Age: 55 Year
  Sex: Female

DRUGS (17)
  1. PREDNISONE TAB [Concomitant]
  2. CIPRO                              /00042702/ [Concomitant]
     Dates: start: 20101001, end: 20101001
  3. FLUCONAZOLE [Concomitant]
  4. NORVASC [Concomitant]
  5. POSACONAZOLE [Concomitant]
  6. CYCLOSPORINE [Concomitant]
     Dosage: UNK
     Dates: start: 20100907, end: 20101006
  7. AMICAR [Concomitant]
  8. DANAZOL [Concomitant]
     Dosage: UNK
     Dates: start: 20100927
  9. ACYCLOVIR [Concomitant]
  10. PENTAMIDINE                        /00187102/ [Concomitant]
  11. NPLATE [Suspect]
     Dates: start: 20100920, end: 20101129
  12. SYNTHROID [Concomitant]
  13. MICAFUNGIN [Concomitant]
  14. NPLATE [Suspect]
     Indication: IDIOPATHIC THROMBOCYTOPENIC PURPURA
     Dosage: 10 A?G/KG, UNK
     Dates: start: 20100920, end: 20101129
  15. IMMUNOGLOBULINS [Concomitant]
     Dosage: UNK
     Route: 042
     Dates: start: 20100823, end: 20100827
  16. RITUXIMAB [Concomitant]
     Dosage: UNK
     Dates: start: 20101001, end: 20101022
  17. ATOVAQUONE [Concomitant]

REACTIONS (3)
  - IDIOPATHIC THROMBOCYTOPENIC PURPURA [None]
  - BONE MARROW RETICULIN FIBROSIS [None]
  - DRUG INEFFECTIVE [None]
